FAERS Safety Report 8521243-1 (Version None)
Quarter: 2012Q3

REPORT INFORMATION
  Report Type: 
  Country: None (occurrence: None)
  Receive Date: 20120719
  Receipt Date: 20120711
  Transmission Date: 20120928
  Serious: Yes (Hospitalization)
  Sender: FDA-Public Use
  Company Number: US-ROCHE-1082614

PATIENT
  Sex: Female
  Weight: 56.9 kg

DRUGS (15)
  1. LIPITOR [Concomitant]
     Dosage: AT NIGHT
     Dates: start: 20030101
  2. SPIRIVA [Concomitant]
     Dates: start: 20030101
  3. BENICAR HCT [Concomitant]
     Dosage: 40/25 MG, DAILY
     Dates: start: 20120620
  4. VENTOLIN [Concomitant]
     Dosage: 1 PUFF
     Dates: start: 20030101
  5. BENICAR HCT [Concomitant]
     Dates: start: 20060101
  6. PACLITAXEL [Suspect]
     Indication: OVARIAN CANCER
     Route: 042
     Dates: start: 20120611, end: 20120611
  7. CALCIUM [Concomitant]
     Dosage: DAILY
  8. CARBOPLATIN [Suspect]
     Indication: OVARIAN CANCER
     Dosage: AUC=6
     Route: 042
     Dates: start: 20120611
  9. ADVAIR DISKUS 100/50 [Concomitant]
     Dosage: 1 PUFF
     Dates: start: 20030101
  10. METOPROLOL SLOW RELEASE [Concomitant]
     Dates: start: 20060101
  11. MULTI-VITAMIN [Concomitant]
     Dosage: DAILY
  12. AVASTIN [Suspect]
     Indication: OVARIAN CANCER
     Route: 042
     Dates: start: 20120611, end: 20120611
  13. METOPROLOL SLOW RELEASE [Concomitant]
     Dates: start: 20120620
  14. MAGNESIUM SULFATE [Concomitant]
     Route: 048
     Dates: start: 20120619
  15. ASPIRIN [Concomitant]
     Indication: PROPHYLAXIS
     Dates: start: 20070101

REACTIONS (5)
  - BLOOD MAGNESIUM DECREASED [None]
  - HAEMOGLOBIN DECREASED [None]
  - BLOOD CALCIUM DECREASED [None]
  - NEUTROPHIL COUNT DECREASED [None]
  - BLOOD SODIUM DECREASED [None]
